FAERS Safety Report 25595360 (Version 1)
Quarter: 2025Q3

REPORT INFORMATION
  Report Type: Spontaneous
  Country: MX (occurrence: MX)
  Receive Date: 20250723
  Receipt Date: 20250723
  Transmission Date: 20251021
  Serious: Yes (Other)
  Sender: SANOFI AVENTIS
  Company Number: MX-SA-2025SA209044

PATIENT
  Sex: Female

DRUGS (1)
  1. MYOZYME [Suspect]
     Active Substance: ALGLUCOSIDASE ALFA
     Indication: Glycogen storage disease type II
     Route: 042

REACTIONS (4)
  - Thrombocytopenia [Unknown]
  - Platelet count decreased [Unknown]
  - Haematoma [Unknown]
  - Dysuria [Unknown]
